FAERS Safety Report 8524106-0 (Version None)
Quarter: 2012Q3

REPORT INFORMATION
  Report Type: 
  Country: None (occurrence: None)
  Receive Date: 20120720
  Receipt Date: 20120711
  Transmission Date: 20120928
  Serious: Yes (Hospitalization)
  Sender: FDA-Public Use
  Company Number: US-SANOFI-AVENTIS-2012SA049652

PATIENT
  Age: 67 Year
  Sex: Male
  Weight: 148 kg

DRUGS (15)
  1. INVESTIGATIONAL DRUG [Suspect]
     Indication: PROSTATE CANCER
     Route: 042
     Dates: start: 20111114
  2. ASPIRIN [Concomitant]
     Route: 048
  3. ACETAMINOPHEN [Concomitant]
     Indication: BACK PAIN
     Route: 048
  4. ATENOLOL [Concomitant]
     Indication: HYPERTENSION
  5. DEXAMETHASONE [Concomitant]
     Indication: PREMEDICATION
     Route: 048
  6. OXYCODONE HCL [Concomitant]
     Indication: PAIN
  7. DOCETAXEL [Suspect]
     Indication: PROSTATE CANCER
     Route: 042
     Dates: start: 20111121, end: 20111121
  8. PROCHLORPERAZINE EDISYLATE [Concomitant]
     Indication: NAUSEA
  9. IBUPROFEN [Concomitant]
     Indication: PAIN
     Route: 048
  10. MULTI-VITAMINS [Concomitant]
     Indication: VITAMIN SUPPLEMENTATION
  11. PRAVASTATIN [Concomitant]
     Route: 048
  12. HYDROCHLOROTHIAZIDE [Concomitant]
     Route: 048
  13. OMEPRAZOLE [Concomitant]
     Route: 048
  14. PREDNISONE [Concomitant]
     Indication: PROSTATE CANCER
     Route: 048
  15. PROCHLORPERAZINE EDISYLATE [Concomitant]
     Indication: VOMITING

REACTIONS (1)
  - CAPILLARY LEAK SYNDROME [None]
